FAERS Safety Report 11726798 (Version 1)
Quarter: 2015Q4

REPORT INFORMATION
  Report Type: Spontaneous
  Country: AU (occurrence: AU)
  Receive Date: 20151112
  Receipt Date: 20151112
  Transmission Date: 20160304
  Serious: Yes (Other)
  Sender: FDA-Public Use
  Company Number: AU-DRREDDYS-USA/AUS/15/0053859

PATIENT
  Sex: Male

DRUGS (4)
  1. THYROXINE [Concomitant]
     Active Substance: LEVOTHYROXINE
     Indication: PRODUCT USED FOR UNKNOWN INDICATION
  2. LAMOTRIGINE. [Suspect]
     Active Substance: LAMOTRIGINE
     Indication: PRODUCT USED FOR UNKNOWN INDICATION
     Route: 064
  3. QUETIAPINE [Suspect]
     Active Substance: QUETIAPINE
     Indication: PRODUCT USED FOR UNKNOWN INDICATION
     Route: 064
  4. LAMOTRIGINE. [Suspect]
     Active Substance: LAMOTRIGINE
     Route: 064

REACTIONS (8)
  - Shoulder dystocia [Recovering/Resolving]
  - Foetal exposure during pregnancy [Unknown]
  - Neonatal behavioural syndrome [Recovering/Resolving]
  - Subgaleal haematoma [Recovering/Resolving]
  - Cardiac arrest neonatal [Recovering/Resolving]
  - Apnoea neonatal [Recovering/Resolving]
  - Hypoxic-ischaemic encephalopathy [Recovering/Resolving]
  - Drug withdrawal syndrome [Unknown]
